FAERS Safety Report 13610129 (Version 2)
Quarter: 2017Q2

REPORT INFORMATION
  Report Type: Spontaneous
  Country: None (occurrence: FR)
  Receive Date: 20170604
  Receipt Date: 20170624
  Transmission Date: 20170830
  Serious: Yes (Hospitalization)
  Sender: FDA-Public Use
  Company Number: FR-ALSI-201700157

PATIENT
  Age: 74 Year
  Sex: Male

DRUGS (2)
  1. OXYGEN MEDICINAL LIQUID [Suspect]
     Active Substance: OXYGEN
     Indication: PRODUCT USED FOR UNKNOWN INDICATION
     Route: 055
     Dates: start: 20130523
  2. OXYGEN MEDICINAL [Suspect]
     Active Substance: OXYGEN
     Route: 055
     Dates: start: 20130523

REACTIONS (3)
  - Intentional product misuse [Not Recovered/Not Resolved]
  - Accident [Not Recovered/Not Resolved]
  - Thermal burn [Not Recovered/Not Resolved]
